FAERS Safety Report 4875732-1 (Version None)
Quarter: 2006Q1

REPORT INFORMATION
  Report Type: 
  Country: None (occurrence: None)
  Receive Date: 20060105
  Receipt Date: 20060102
  Transmission Date: 20060701
  Serious: Yes (Other)
  Sender: FDA-Public Use
  Company Number: 27960

PATIENT
  Age: 37 Year
  Sex: Female

DRUGS (8)
  1. ALDARA [Suspect]
     Indication: BOWEN'S DISEASE
     Dosage: SEE IMAGE
     Route: 061
     Dates: start: 20050926, end: 20051025
  2. ALDARA [Suspect]
     Indication: BOWEN'S DISEASE
     Dosage: SEE IMAGE
     Route: 061
     Dates: start: 20051115, end: 20051218
  3. SOLUPRED (PREDNISOLONE SODIUM SULFOBENZOATE) [Concomitant]
  4. PROGRAF [Concomitant]
  5. CELLCEPT [Concomitant]
  6. TENORMIN [Concomitant]
  7. LEDERFOLINE (CALCIUM FOLINATE) [Concomitant]
  8. ADEPAL (LEVONORGESTREL, ETHINYLESTRADIOL, LEVONORGESTREL, ETHINYLOESTR [Concomitant]

REACTIONS (5)
  - APPLICATION SITE ERYTHEMA [None]
  - APPLICATION SITE EXFOLIATION [None]
  - BLOOD CREATININE INCREASED [None]
  - CREATININE RENAL CLEARANCE DECREASED [None]
  - PROTEINURIA [None]
